FAERS Safety Report 5979914-7 (Version None)
Quarter: 2008Q4

REPORT INFORMATION
  Report Type: 
  Country: None (occurrence: None)
  Receive Date: 20081126
  Receipt Date: 20081121
  Transmission Date: 20090506
  Serious: Yes (Hospitalization)
  Sender: FDA-Public Use
  Company Number: 2008SP002561

PATIENT
  Age: 47 Year
  Sex: Female
  Weight: 56 kg

DRUGS (7)
  1. ESZOPICLONE (ESZOPICLONE) [Suspect]
     Indication: DEPRESSION
     Dosage: 3 MG;HS;ORAL
     Route: 048
     Dates: start: 20080619, end: 20081006
  2. ESZOPICLONE (ESZOPICLONE) [Suspect]
     Indication: DEPRESSION
     Dosage: 3 MG;HS;ORAL
     Route: 048
     Dates: start: 20081008
  3. VENLAFAXINE HCL [Suspect]
     Indication: DEPRESSION
     Dosage: 75 MG;HS;ORAL, 150MG;HS;ORAL, 150 MG;HS;ORAL
     Route: 048
     Dates: start: 20080721, end: 20081006
  4. VENLAFAXINE HCL [Suspect]
     Indication: DEPRESSION
     Dosage: 75 MG;HS;ORAL, 150MG;HS;ORAL, 150 MG;HS;ORAL
     Route: 048
     Dates: start: 20080619
  5. VENLAFAXINE HCL [Suspect]
     Indication: DEPRESSION
     Dosage: 75 MG;HS;ORAL, 150MG;HS;ORAL, 150 MG;HS;ORAL
     Route: 048
     Dates: start: 20081008
  6. CON MEDS [Concomitant]
  7. PREV MEDS [Concomitant]

REACTIONS (3)
  - HEMIPLEGIA [None]
  - PAIN IN EXTREMITY [None]
  - SCIATIC NERVE PALSY [None]
